FAERS Safety Report 24996723 (Version 2)
Quarter: 2025Q1

REPORT INFORMATION
  Report Type: Spontaneous
  Country: JP (occurrence: JP)
  Receive Date: 20250221
  Receipt Date: 20250321
  Transmission Date: 20250409
  Serious: Yes (Hospitalization, Other)
  Sender: JAZZ
  Company Number: JP-JAZZ PHARMACEUTICALS-2025-JP-002581

PATIENT
  Age: 66 Year
  Sex: Female

DRUGS (1)
  1. VYXEOS [Suspect]
     Active Substance: CYTARABINE\DAUNORUBICIN
     Indication: Acute myeloid leukaemia
     Route: 042
     Dates: start: 20250107, end: 20250114

REACTIONS (2)
  - Cardiac dysfunction [Not Recovered/Not Resolved]
  - Febrile neutropenia [Recovering/Resolving]

NARRATIVE: CASE EVENT DATE: 20250121
